FAERS Safety Report 9308386 (Version 1)
Quarter: 2013Q2

REPORT INFORMATION
  Report Type: Spontaneous
  Country: US (occurrence: US)
  Receive Date: 20130524
  Receipt Date: 20130524
  Transmission Date: 20140414
  Serious: Yes (Other)
  Sender: FDA-Public Use
  Company Number: US-PFIZER INC-2013158485

PATIENT
  Sex: 0

DRUGS (2)
  1. LYRICA [Suspect]
     Indication: NECK PAIN
     Dosage: UNK
  2. LYRICA [Suspect]
     Indication: PAIN

REACTIONS (1)
  - Activities of daily living impaired [Unknown]
